FAERS Safety Report 7110694-8 (Version None)
Quarter: 2010Q4

REPORT INFORMATION
  Report Type: 
  Country: None (occurrence: None)
  Receive Date: 20101118
  Receipt Date: 20101110
  Transmission Date: 20110411
  Serious: Yes (Death, Hospitalization)
  Sender: FDA-Public Use
  Company Number: A0879546A

PATIENT
  Age: 83 Year
  Sex: Female

DRUGS (2)
  1. AVANDIA [Suspect]
     Dosage: 4MG TWICE PER DAY
     Route: 048
     Dates: end: 20060801
  2. AVANDAMET [Suspect]
     Route: 048
     Dates: start: 20070125, end: 20080101

REACTIONS (2)
  - CARDIAC FAILURE [None]
  - DEATH [None]
